FAERS Safety Report 12078851 (Version 3)
Quarter: 2017Q3

REPORT INFORMATION
  Report Type: Spontaneous
  Country: JP (occurrence: JP)
  Receive Date: 20160216
  Receipt Date: 20170801
  Transmission Date: 20171127
  Serious: Yes (Other)
  Sender: FDA-Public Use
  Company Number: PHJP2016JP003022

PATIENT
  Age: 70 Year
  Sex: Female

DRUGS (1)
  1. VOTRIENT [Suspect]
     Active Substance: PAZOPANIB HYDROCHLORIDE
     Indication: LEIOMYOSARCOMA RECURRENT
     Dosage: UNK
     Route: 048

REACTIONS (4)
  - Tumour invasion [Unknown]
  - Tendonitis [Unknown]
  - Liver disorder [Unknown]
  - Pain [Recovered/Resolved]
